FAERS Safety Report 4467786-1 (Version None)
Quarter: 2004Q4

REPORT INFORMATION
  Report Type: 
  Country: None (occurrence: None)
  Receive Date: 20041004
  Receipt Date: 20041004
  Transmission Date: 20050328
  Serious: Yes (Life-Threatening, Hospitalization)
  Sender: FDA-Public Use
  Company Number: None

PATIENT
  Age: 65 Year
  Sex: Female
  Weight: 53.978 kg

DRUGS (4)
  1. GEMCITABINE 1G ELI LILLY [Suspect]
     Indication: PANCREATIC CARCINOMA
     Dosage: 1500 MG/M2 Q 4 WEEKS INTRAVENOU
     Route: 042
     Dates: start: 20040811, end: 20040811
  2. GEMCITABINE 1G ELI LILLY [Suspect]
     Indication: PANCREATIC CARCINOMA
     Dosage: 1500 MG/M2 Q 4 WEEKS INTRAVENOU
     Route: 042
     Dates: start: 20040908, end: 20040908
  3. ANZEMET [Concomitant]
  4. DECADRON [Concomitant]

REACTIONS (2)
  - ACUTE MYOCARDIAL INFARCTION [None]
  - VOMITING [None]
